FAERS Safety Report 19220226 (Version 1)
Quarter: 2021Q2

REPORT INFORMATION
  Report Type: Other
  Country: DK (occurrence: DK)
  Receive Date: 20210506
  Receipt Date: 20210506
  Transmission Date: 20210717
  Serious: Yes (Death, Hospitalization, Other)
  Sender: FDA-Public Use
  Company Number: DK-GLENMARK PHARMACEUTICALS-2021GMK053786

PATIENT

DRUGS (17)
  1. MAGNESIUM [Concomitant]
     Active Substance: MAGNESIUM
     Indication: BLOOD MAGNESIUM DECREASED
     Dosage: 1080 MILLIGRAM, OD
     Route: 048
     Dates: start: 20160609, end: 20210310
  2. LERCASTAD [Concomitant]
     Indication: HYPERTENSION
     Dosage: 20 MILLIGRAM (REPORTED AS: 20 MG DAILY, IF THE BLOOD PRESSURE } 120 SYSTOLIC)
     Route: 048
     Dates: start: 20190605, end: 20210319
  3. PANODIL [Concomitant]
     Active Substance: ACETAMINOPHEN
     Indication: PAIN
     Dosage: 4000 MILLIGRAM, OD
     Route: 048
     Dates: start: 20160127, end: 20210310
  4. GLEPARK, TABLETTER [Suspect]
     Active Substance: PRAMIPEXOLE DIHYDROCHLORIDE
     Indication: PARKINSON^S DISEASE
     Dosage: 0.36 MILLIGRAM, OD
     Route: 048
     Dates: start: 20101101, end: 20210310
  5. CLORIOCARD [Concomitant]
     Active Substance: CLOPIDOGREL HYDROCHLORIDE
     Indication: THROMBOSIS PROPHYLAXIS
     Dosage: 75 MILLIGRAM, OD
     Route: 048
     Dates: start: 20190519, end: 20210319
  6. CARVEDILOL HEXAL [Concomitant]
     Active Substance: CARVEDILOL
     Indication: HYPERTENSION
     Dosage: 25 MILLIGRAM, OD
     Route: 048
     Dates: start: 20180404, end: 20210319
  7. VITAMIN D [VITAMIN D NOS] [Concomitant]
     Active Substance: VITAMIN D NOS
     Indication: VITAMIN D DEFICIENCY
     Dosage: 100 MICROGRAM, OD
     Route: 048
     Dates: start: 20160831, end: 20210319
  8. CITALOPRAM [Concomitant]
     Active Substance: CITALOPRAM HYDROBROMIDE
     Indication: DEPRESSION
     Dosage: 20 MILLIGRAM, OD
     Route: 048
     Dates: start: 20190625, end: 20210319
  9. CREON [Concomitant]
     Active Substance: PANCRELIPASE AMYLASE\PANCRELIPASE LIPASE\PANCRELIPASE PROTEASE
     Indication: ENZYME ABNORMALITY
     Dosage: 3 DOSAGE FORM, OD (STRENGTH: 25.000 EP?E)
     Route: 048
     Dates: start: 20190410, end: 20210319
  10. SANDOSTATIN LAR DEPOT [Concomitant]
     Active Substance: OCTREOTIDE ACETATE
     Indication: GASTROENTEROPANCREATIC NEUROENDOCRINE TUMOUR DISEASE
     Dosage: 30 MILLIGRAM (4 TIMES A WEEK)
     Route: 030
     Dates: start: 20160701, end: 20210319
  11. SELEXID [PIVMECILLINAM HYDROCHLORIDE] [Concomitant]
     Active Substance: PIVMECILLINAM HYDROCHLORIDE
     Indication: CYSTITIS
     Dosage: 1200 MILLIGRAM, OD
     Route: 048
     Dates: start: 20190617, end: 20200727
  12. THIAMINE HYDROCHLORIDE. [Concomitant]
     Active Substance: THIAMINE HYDROCHLORIDE
     Indication: VITAMIN SUPPLEMENTATION
     Dosage: 300 MILLIGRAM, OD (TIAMIN ^SAD^)
     Route: 048
     Dates: start: 20190521, end: 20210319
  13. GANFORT [Concomitant]
     Active Substance: BIMATOPROST\TIMOLOL
     Indication: GLAUCOMA
     Dosage: 1 DOSAGE FORM, QD (REPORTED AS: 1 DROP IN THE LEFT EYE)
     Route: 047
     Dates: start: 20151202, end: 20210319
  14. QUETIAPIN ACCORD [Concomitant]
     Active Substance: QUETIAPINE
     Indication: SEDATIVE THERAPY
     Dosage: 25 MILLIGRAM, OD (REPORTED AS: 25 MG, 0?0?1?0)
     Route: 048
     Dates: start: 20190625, end: 20210125
  15. ROSUVASTATIN ACCORD [Concomitant]
     Active Substance: ROSUVASTATIN
     Indication: HYPERCHOLESTEROLAEMIA
     Dosage: 5 MILLIGRAM, OD
     Route: 048
     Dates: start: 20150512, end: 20210310
  16. FUROSEMID ORIFARM [Concomitant]
     Active Substance: FUROSEMIDE
     Indication: DIURETIC THERAPY
     Dosage: 20 MILLIGRAM, OD
     Route: 048
     Dates: start: 20190624, end: 20201111
  17. SIMBRINZA [Concomitant]
     Active Substance: BRIMONIDINE TARTRATE\BRINZOLAMIDE
     Indication: GLAUCOMA
     Dosage: 2 DOSAGE FORM, OD (REPORTED AS: 1 DROP IN THE LEFT EYE TWO TIMES A DAY)
     Route: 047
     Dates: start: 20160613, end: 20210319

REACTIONS (3)
  - Fall [Fatal]
  - Mental disorder [Fatal]
  - Delirium [Fatal]

NARRATIVE: CASE EVENT DATE: 20190901
